FAERS Safety Report 7483812-X (Version None)
Quarter: 2011Q2

REPORT INFORMATION
  Report Type: 
  Country: None (occurrence: None)
  Receive Date: 20110513
  Receipt Date: 20110513
  Transmission Date: 20111010
  Serious: Yes (Other)
  Sender: FDA-Public Use
  Company Number: None

PATIENT
  Age: 21 Year
  Sex: Male
  Weight: 83.9154 kg

DRUGS (1)
  1. SMOKE FREE ELECTRONIC HIGH SMOKEFREE [Suspect]
     Indication: SMOKING CESSATION THERAPY
     Dosage: AS NEEDED INHALE
     Route: 055
     Dates: start: 20110509, end: 20110512

REACTIONS (3)
  - LIP SWELLING [None]
  - ERYTHEMA [None]
  - DEVICE LEAKAGE [None]
